FAERS Safety Report 21077039 (Version 1)
Quarter: 2022Q3

REPORT INFORMATION
  Report Type: Report from Study
  Country: US (occurrence: US)
  Receive Date: 20220713
  Receipt Date: 20220713
  Transmission Date: 20221027
  Serious: Yes (Death, Hospitalization, Other)
  Sender: FDA-Public Use
  Company Number: US-AMGEN-USASL2022116184

PATIENT
  Age: 89 Year
  Sex: Female

DRUGS (1)
  1. LUMAKRAS [Suspect]
     Active Substance: SOTORASIB
     Indication: Lung neoplasm malignant
     Dosage: 960 MILLIGRAM, QD
     Route: 048
     Dates: start: 20220403

REACTIONS (5)
  - Pneumonia aspiration [Fatal]
  - Sepsis [Unknown]
  - Escherichia infection [Unknown]
  - Urinary tract infection [Unknown]
  - Diarrhoea [Unknown]
